FAERS Safety Report 7954645-2 (Version None)
Quarter: 2011Q4

REPORT INFORMATION
  Report Type: 
  Country: None (occurrence: None)
  Receive Date: 20111202
  Receipt Date: 20111129
  Transmission Date: 20120403
  Serious: Yes (Hospitalization, Other)
  Sender: FDA-Public Use
  Company Number: PHEH2006US14747

PATIENT
  Sex: Female

DRUGS (40)
  1. CHEMOTHERAPEUTICS NOS [Suspect]
     Indication: BREAST CANCER METASTATIC
  2. FERROUS SULFATE TAB [Concomitant]
  3. HYDROMORPHONE HCL [Concomitant]
     Dosage: 2 MG, Q3H
     Route: 048
  4. OXYCONTIN [Concomitant]
  5. VICODIN [Concomitant]
  6. DECADRON [Concomitant]
     Dosage: 4 MG, Q12H
     Route: 048
  7. DEXAMETHASONE [Concomitant]
     Dosage: 4 MG, BID
  8. LEVOFLOXACIN [Concomitant]
     Dosage: 500 MG, QD
  9. AMBIEN [Concomitant]
     Dosage: 25 MG,  1 A DAY
  10. REGLAN [Concomitant]
     Dosage: 5 MG, QHS
     Route: 048
  11. PRINIVIL [Concomitant]
     Dosage: 20 MG, QD
     Route: 048
  12. PERCOCET [Concomitant]
     Dosage: 1 DF, Q6H
     Route: 048
  13. CEFAZOLIN [Concomitant]
  14. LATANOPROST [Concomitant]
     Dosage: 1 DRP, QHS, BOTH EYES
     Route: 047
  15. PAROXETINE HCL [Concomitant]
  16. TEMAZEPAM [Concomitant]
  17. CALCIUM [Concomitant]
  18. AROMASIN [Concomitant]
  19. VALTREX [Concomitant]
     Dosage: 500 MG, QD
     Dates: start: 20070601
  20. PRILOSEC [Concomitant]
     Dosage: 20 MG, QD
     Route: 048
  21. EXTRA STRENGTH TYLENOL [Concomitant]
     Dosage: 650 MG, Q4H
     Route: 048
  22. DILAUDID [Concomitant]
     Dosage: 2 MG, Q3H
     Route: 048
  23. OLANZAPINE [Concomitant]
     Dosage: 2.5 MG, QD
  24. BACITRACIN [Concomitant]
     Dosage: UNK UKN, TID
     Route: 061
  25. FEMARA [Concomitant]
  26. PAXIL [Concomitant]
     Dosage: 10 MG, QD
  27. ZOMETA [Suspect]
     Dates: start: 20040101
  28. LISINOPRIL [Concomitant]
  29. VITAMIN B6 [Concomitant]
  30. LIPITOR [Concomitant]
     Dosage: 10 MG, 1 A DAY
  31. LORAZEPAM [Concomitant]
     Dosage: 0.5 MG, QD
     Dates: start: 20060101
  32. XELODA [Concomitant]
     Dosage: 2.5 MG, QD
     Route: 048
  33. TRAVATAN [Concomitant]
     Dosage: 1 DRP, QD
     Route: 047
  34. TRIAMTERENE [Concomitant]
     Dosage: 37.5 MG, QD
  35. MILK OF MAGNESIA TAB [Concomitant]
  36. AMPICILLIN [Concomitant]
     Dosage: 500 MG, Q6H
     Route: 042
  37. NADOLOL [Concomitant]
  38. GLUCOSAMINE [Concomitant]
  39. PREMARIN [Concomitant]
     Dosage: 6.25 G, QD
  40. ZOFRAN [Concomitant]
     Dosage: 8 MG, TID
     Route: 048

REACTIONS (64)
  - PAIN [None]
  - DECREASED INTEREST [None]
  - CHOLELITHIASIS [None]
  - HEPATIC LESION [None]
  - GALLBLADDER DISORDER [None]
  - GINGIVAL DISORDER [None]
  - SPINAL COMPRESSION FRACTURE [None]
  - METASTASES TO MENINGES [None]
  - CONSTIPATION [None]
  - HEADACHE [None]
  - LYMPHADENITIS [None]
  - METASTASES TO LIVER [None]
  - TYPE 2 DIABETES MELLITUS [None]
  - OBESITY [None]
  - FISTULA DISCHARGE [None]
  - SWELLING FACE [None]
  - ARTERIOSCLEROSIS CORONARY ARTERY [None]
  - SPINAL COLUMN STENOSIS [None]
  - GAIT DISTURBANCE [None]
  - DELIRIUM [None]
  - STEVENS-JOHNSON SYNDROME [None]
  - BREAST CANCER METASTATIC [None]
  - OSTEONECROSIS OF JAW [None]
  - ERYTHEMA [None]
  - HYPERTENSION [None]
  - RHEUMATOID ARTHRITIS [None]
  - ARTHROPATHY [None]
  - PARANOIA [None]
  - MENTAL STATUS CHANGES [None]
  - HYPERLIPIDAEMIA [None]
  - NEOPLASM MALIGNANT [None]
  - DRY MOUTH [None]
  - OSTEOPOROSIS [None]
  - LUNG NEOPLASM [None]
  - BLADDER DYSFUNCTION [None]
  - OSTEOMYELITIS [None]
  - ANXIETY [None]
  - OSTEOPENIA [None]
  - CENTRAL NERVOUS SYSTEM LESION [None]
  - BILIARY DILATATION [None]
  - EXPOSED BONE IN JAW [None]
  - CHRONIC OBSTRUCTIVE PULMONARY DISEASE [None]
  - HERPES SIMPLEX [None]
  - INTERVERTEBRAL DISC PROTRUSION [None]
  - FAECAL INCONTINENCE [None]
  - WEIGHT DECREASED [None]
  - DYSPNOEA EXERTIONAL [None]
  - RENAL CYST [None]
  - HYPOAESTHESIA [None]
  - LUNG HYPERINFLATION [None]
  - VOMITING [None]
  - URINARY INCONTINENCE [None]
  - METASTASES TO BONE [None]
  - BILE DUCT CANCER [None]
  - MOUTH ULCERATION [None]
  - TAENIASIS [None]
  - GENERAL PHYSICAL HEALTH DETERIORATION [None]
  - LYMPHADENOPATHY [None]
  - HEPATIC STEATOSIS [None]
  - BACK PAIN [None]
  - EXOSTOSIS [None]
  - PARAPARESIS [None]
  - ABSCESS JAW [None]
  - BONE FISTULA [None]
